FAERS Safety Report 15516495 (Version 1)
Quarter: 2018Q4

REPORT INFORMATION
  Report Type: Spontaneous
  Country: US (occurrence: US)
  Receive Date: 20181011
  Receipt Date: 20181011
  Transmission Date: 20190205
  Serious: Yes (Death)
  Sender: FDA-Public Use
  Company Number: None

PATIENT
  Age: 64 Year
  Sex: Female

DRUGS (1)
  1. STIVARGA [Suspect]
     Active Substance: REGORAFENIB
     Indication: PRODUCT USED FOR UNKNOWN INDICATION
     Dosage: 40MG TAKE 4 TABLETS (160) ORAL?
     Route: 048
     Dates: start: 20180929, end: 20180929

REACTIONS (1)
  - Death [None]

NARRATIVE: CASE EVENT DATE: 20180929
